FAERS Safety Report 4957434-6 (Version None)
Quarter: 2006Q1

REPORT INFORMATION
  Report Type: 
  Country: None (occurrence: None)
  Receive Date: 20060327
  Receipt Date: 20060322
  Transmission Date: 20060701
  Serious: Yes (Other)
  Sender: FDA-Public Use
  Company Number: 20060007USST

PATIENT
  Age: 52 Year
  Sex: Male

DRUGS (12)
  1. NATULAN (PROCARBAZINE HYDROCHLORIDE) CAPSULES [Suspect]
     Indication: HODGKIN'S DISEASE
     Dates: start: 20060110, end: 20060130
  2. NEUPOGEN [Suspect]
     Indication: HODGKIN'S DISEASE
     Dates: start: 20060201
  3. PREDNISONE [Suspect]
     Indication: HODGKIN'S DISEASE
     Dates: start: 20060110, end: 20060130
  4. CYCLOPHOSPHAMIDE [Suspect]
     Indication: HODGKIN'S DISEASE
     Dates: start: 20060110, end: 20060124
  5. DOXORUBICIN HCL [Suspect]
     Indication: HODGKIN'S DISEASE
     Dates: start: 20060110, end: 20060124
  6. ETOPOSOD [Suspect]
     Indication: HODGKIN'S DISEASE
     Dates: start: 20060110, end: 20060124
  7. FILGRASTIM [Suspect]
     Indication: HODGKIN'S DISEASE
     Dates: start: 20060124
  8. PREDNISONE [Concomitant]
  9. CYCLOPHOSPHAMIDE [Concomitant]
  10. DOXORUBICIN HCL [Concomitant]
  11. ETOPOSOD [Concomitant]
  12. FILGRASTIM [Concomitant]

REACTIONS (4)
  - CHEST DISCOMFORT [None]
  - CHEST PAIN [None]
  - MYOCARDIAL INFARCTION [None]
  - POST PROCEDURAL COMPLICATION [None]
